FAERS Safety Report 14183069 (Version 1)
Quarter: 2017Q4

REPORT INFORMATION
  Report Type: Spontaneous
  Country: IT (occurrence: IT)
  Receive Date: 20171113
  Receipt Date: 20171113
  Transmission Date: 20180321
  Serious: Yes (Other)
  Sender: FDA-Public Use
  Company Number: IT-GLAXOSMITHKLINE-IT2017GSK172555

PATIENT
  Age: 72 Year
  Sex: Female

DRUGS (3)
  1. VIMPAT [Suspect]
     Active Substance: LACOSAMIDE
     Indication: EPILEPSY
     Dosage: 200 MG, QD
  2. CEFTRIAXONE. [Suspect]
     Active Substance: CEFTRIAXONE
  3. ACYCLOVIR. [Suspect]
     Active Substance: ACYCLOVIR

REACTIONS (2)
  - Bradycardia [Recovering/Resolving]
  - Encephalitis [Unknown]

NARRATIVE: CASE EVENT DATE: 20170116
